FAERS Safety Report 11853043 (Version 1)
Quarter: 2015Q4

REPORT INFORMATION
  Report Type: Other
  Country: US (occurrence: US)
  Receive Date: 20151218
  Receipt Date: 20151218
  Transmission Date: 20160305
  Serious: Yes (Other)
  Sender: FDA-Public Use
  Company Number: US-DEP_13239_2015

PATIENT
  Age: 67 Year
  Sex: Female

DRUGS (5)
  1. ATROPINE. [Suspect]
     Active Substance: ATROPINE
     Indication: SINUS ARRHYTHMIA
     Dosage: LOW DOSE, TOTAL DOSE OF 2 MG IN 0.5 MG INCREMENTS
  2. METHOHEXITAL [Suspect]
     Active Substance: METHOHEXITAL
     Indication: SEDATIVE THERAPY
  3. MIDAZOLAM [Suspect]
     Active Substance: MIDAZOLAM\MIDAZOLAM HYDROCHLORIDE
     Indication: SEDATIVE THERAPY
  4. FENTANYL. [Suspect]
     Active Substance: FENTANYL
     Indication: SEDATIVE THERAPY
  5. FLUMAZENIL. [Suspect]
     Active Substance: FLUMAZENIL
     Indication: REVERSAL OF SEDATION

REACTIONS (5)
  - Delirium [Recovered/Resolved]
  - Drug interaction [Recovered/Resolved]
  - Dyskinesia [Recovered/Resolved]
  - Toxicity to various agents [Recovered/Resolved]
  - Speech disorder [Recovered/Resolved]
